FAERS Safety Report 10647221 (Version 2)
Quarter: 2015Q1

REPORT INFORMATION
  Report Type: Spontaneous
  Country: US (occurrence: US)
  Receive Date: 20141211
  Receipt Date: 20150204
  Transmission Date: 20150720
  Serious: No
  Sender: FDA-Public Use
  Company Number: US-PFIZER INC-2014339857

PATIENT
  Age: 59 Year
  Sex: Female

DRUGS (5)
  1. LYRICA [Suspect]
     Active Substance: PREGABALIN
     Indication: NEURALGIA
     Dosage: 75 MG, 2X/DAY
  2. PERCOCET [Concomitant]
     Active Substance: ACETAMINOPHEN\OXYCODONE HYDROCHLORIDE
     Dosage: 15 MG, UNK
     Dates: start: 20120829
  3. LYRICA [Suspect]
     Active Substance: PREGABALIN
     Indication: MUSCLE SPASMS
     Dosage: 50 MG, 2X/DAY
     Dates: start: 20140815
  4. LYRICA [Suspect]
     Active Substance: PREGABALIN
     Dosage: 100 MG, 2X/DAY
  5. CITALOPRAM [Concomitant]
     Active Substance: CITALOPRAM HYDROBROMIDE
     Dosage: 20 MG, UNK
     Dates: start: 20061209

REACTIONS (1)
  - Product use issue [Unknown]
